FAERS Safety Report 4601918-7 (Version None)
Quarter: 2005Q1

REPORT INFORMATION
  Report Type: 
  Country: None (occurrence: None)
  Receive Date: 20050201
  Receipt Date: 20040220
  Transmission Date: 20050727
  Serious: Yes (Hospitalization)
  Sender: FDA-Public Use
  Company Number: 200413169BWH

PATIENT
  Age: 31 Year
  Sex: Male
  Weight: 79.3795 kg

DRUGS (2)
  1. AVELOX [Suspect]
     Dosage: ORAL
     Route: 048
     Dates: start: 20040217, end: 20040219
  2. ^SEVERAL MEDICATIONS FOR OCD (OBSESSIVE-COMPULSIVE DISORDER)^ [Concomitant]

REACTIONS (7)
  - HYPERSENSITIVITY [None]
  - LOCAL SWELLING [None]
  - PRURITUS GENERALISED [None]
  - RASH [None]
  - RASH GENERALISED [None]
  - SWELLING [None]
  - SWELLING FACE [None]
